FAERS Safety Report 6120191-4 (Version None)
Quarter: 2009Q1

REPORT INFORMATION
  Report Type: 
  Country: None (occurrence: None)
  Receive Date: 20090316
  Receipt Date: 20090227
  Transmission Date: 20090719
  Serious: No
  Sender: FDA-Public Use
  Company Number: US-ABBOTT-09P-163-0560326-00

PATIENT
  Sex: Female
  Weight: 72.64 kg

DRUGS (5)
  1. TRILIPIX [Suspect]
     Indication: LOW DENSITY LIPOPROTEIN INCREASED
     Route: 048
     Dates: start: 20090212, end: 20090217
  2. FISH OIL [Concomitant]
     Indication: MEDICAL DIET
     Dosage: UNKNOWN
  3. CARDIZEM LA [Concomitant]
     Indication: HYPERTENSION
     Route: 048
  4. DIAZIDE [Concomitant]
     Indication: HYPERTENSION
     Dosage: 37.5/25 MG
     Route: 048
  5. POTASSIUM CHLORIDE [Concomitant]
     Indication: ELECTROLYTE SUBSTITUTION THERAPY
     Route: 048

REACTIONS (2)
  - PRURITUS [None]
  - RASH [None]
